FAERS Safety Report 6286316-5 (Version None)
Quarter: 2009Q3

REPORT INFORMATION
  Report Type: 
  Country: None (occurrence: None)
  Receive Date: 20090727
  Receipt Date: 20090727
  Transmission Date: 20100115
  Serious: Yes (Other)
  Sender: FDA-Public Use
  Company Number: None

PATIENT
  Sex: Male

DRUGS (2)
  1. LITHIUM CARBONATE [Suspect]
     Indication: BIPOLAR DISORDER
     Dosage: 300MG 2 BID + 1 AT NOON BY MOUTH
     Route: 048
     Dates: start: 20090507, end: 20090607
  2. LITHOBID [Suspect]

REACTIONS (2)
  - NAUSEA [None]
  - VOMITING [None]
